FAERS Safety Report 7062605-1 (Version None)
Quarter: 2010Q4

REPORT INFORMATION
  Report Type: 
  Country: None (occurrence: None)
  Receive Date: 20101026
  Receipt Date: 20091210
  Transmission Date: 20110411
  Serious: No
  Sender: FDA-Public Use
  Company Number: US-PFIZER INC-2009288629

PATIENT
  Sex: Female
  Weight: 54.9 kg

DRUGS (5)
  1. LIPITOR [Suspect]
     Indication: BLOOD CHOLESTEROL INCREASED
     Route: 048
  2. ACETYLSALICYLIC ACID [Concomitant]
     Route: 048
  3. PRILOSEC [Concomitant]
     Indication: BARRETT'S OESOPHAGUS
     Route: 048
  4. TOPROL-XL [Concomitant]
     Dosage: 50 MG, UNK
     Route: 048
  5. CALCIUM [Concomitant]
     Dosage: UNK
     Route: 048

REACTIONS (1)
  - BLOOD CREATINE PHOSPHOKINASE INCREASED [None]
